FAERS Safety Report 6707749-6 (Version None)
Quarter: 2010Q2

REPORT INFORMATION
  Report Type: 
  Country: None (occurrence: None)
  Receive Date: 20100503
  Receipt Date: 20090623
  Transmission Date: 20101027
  Serious: No
  Sender: FDA-Public Use
  Company Number: US-ASTRAZENECA-2009UW16783

PATIENT
  Sex: Male

DRUGS (2)
  1. NEXIUM [Suspect]
     Route: 048
     Dates: start: 20090101
  2. NEXIUM [Suspect]
     Route: 048
     Dates: start: 20090619

REACTIONS (2)
  - CHOKING SENSATION [None]
  - GASTROOESOPHAGEAL REFLUX DISEASE [None]
